FAERS Safety Report 15917119 (Version 1)
Quarter: 2019Q1

REPORT INFORMATION
  Report Type: Spontaneous
  Country: GB (occurrence: GB)
  Receive Date: 20190205
  Receipt Date: 20190205
  Transmission Date: 20190417
  Serious: Yes (Death, Other)
  Sender: FDA-Public Use
  Company Number: GB-ACCORD-104509

PATIENT
  Age: 53 Year
  Sex: Male

DRUGS (4)
  1. CLOZAPINE. [Suspect]
     Active Substance: CLOZAPINE
     Indication: PRODUCT USED FOR UNKNOWN INDICATION
     Dosage: 25MG EVERY MORNING AND 75MG AT NIGHT.
     Dates: start: 20171206
  2. CHLORPROMAZINE. [Concomitant]
     Active Substance: CHLORPROMAZINE
  3. VENLAFAXINE/VENLAFAXINE HYDROCHLORIDE [Concomitant]
  4. CLOZAPINE. [Suspect]
     Active Substance: CLOZAPINE
     Indication: PRODUCT USED FOR UNKNOWN INDICATION
     Dates: start: 20171201, end: 20171205

REACTIONS (3)
  - Cardiac arrest [Fatal]
  - Brain injury [Not Recovered/Not Resolved]
  - Cardiogenic shock [Not Recovered/Not Resolved]

NARRATIVE: CASE EVENT DATE: 201712
